FAERS Safety Report 6371481-1 (Version None)
Quarter: 2009Q3

REPORT INFORMATION
  Report Type: 
  Country: None (occurrence: None)
  Receive Date: 20090923
  Receipt Date: 20070918
  Transmission Date: 20100115
  Serious: No
  Sender: FDA-Public Use
  Company Number: US-ASTRAZENECA-2007UW06133

PATIENT
  Age: 12136 Day
  Sex: Male
  Weight: 66.7 kg

DRUGS (42)
  1. SEROQUEL [Suspect]
     Indication: SLEEP DISORDER
     Dates: start: 20010101
  2. SEROQUEL [Suspect]
     Indication: DEPRESSION
     Dates: start: 20010101
  3. SEROQUEL [Suspect]
     Indication: BIPOLAR DISORDER
     Dates: start: 20010101
  4. SEROQUEL [Suspect]
     Indication: INSOMNIA
     Dates: start: 20010101
  5. SEROQUEL [Suspect]
     Indication: AFFECTIVE DISORDER
     Dates: start: 20010101
  6. SEROQUEL [Suspect]
     Indication: DISTURBANCE IN ATTENTION
     Dates: start: 20010101
  7. SEROQUEL [Suspect]
     Indication: JUDGEMENT IMPAIRED
     Dates: start: 20010101
  8. SEROQUEL [Suspect]
     Dosage: 25-300 MG
     Route: 048
     Dates: start: 20040108, end: 20061101
  9. SEROQUEL [Suspect]
     Dosage: 25-300 MG
     Route: 048
     Dates: start: 20040108, end: 20061101
  10. SEROQUEL [Suspect]
     Dosage: 25-300 MG
     Route: 048
     Dates: start: 20040108, end: 20061101
  11. SEROQUEL [Suspect]
     Dosage: 25-300 MG
     Route: 048
     Dates: start: 20040108, end: 20061101
  12. SEROQUEL [Suspect]
     Dosage: 25-300 MG
     Route: 048
     Dates: start: 20040108, end: 20061101
  13. SEROQUEL [Suspect]
     Dosage: 25-300 MG
     Route: 048
     Dates: start: 20040108, end: 20061101
  14. SEROQUEL [Suspect]
     Dosage: 25-300 MG
     Route: 048
     Dates: start: 20040108, end: 20061101
  15. SEROQUEL [Suspect]
     Dosage: 25 MG - 400 MG DAILY
     Route: 048
     Dates: start: 20031015
  16. SEROQUEL [Suspect]
     Dosage: 25 MG - 400 MG DAILY
     Route: 048
     Dates: start: 20031015
  17. SEROQUEL [Suspect]
     Dosage: 25 MG - 400 MG DAILY
     Route: 048
     Dates: start: 20031015
  18. SEROQUEL [Suspect]
     Dosage: 25 MG - 400 MG DAILY
     Route: 048
     Dates: start: 20031015
  19. SEROQUEL [Suspect]
     Dosage: 25 MG - 400 MG DAILY
     Route: 048
     Dates: start: 20031015
  20. SEROQUEL [Suspect]
     Dosage: 25 MG - 400 MG DAILY
     Route: 048
     Dates: start: 20031015
  21. SEROQUEL [Suspect]
     Dosage: 25 MG - 400 MG DAILY
     Route: 048
     Dates: start: 20031015
  22. SEROQUEL [Suspect]
     Route: 048
     Dates: start: 20060502
  23. SEROQUEL [Suspect]
     Route: 048
     Dates: start: 20060502
  24. SEROQUEL [Suspect]
     Route: 048
     Dates: start: 20060502
  25. SEROQUEL [Suspect]
     Route: 048
     Dates: start: 20060502
  26. SEROQUEL [Suspect]
     Route: 048
     Dates: start: 20060502
  27. SEROQUEL [Suspect]
     Route: 048
     Dates: start: 20060502
  28. SEROQUEL [Suspect]
     Route: 048
     Dates: start: 20060502
  29. ZOLOFT [Concomitant]
     Dates: start: 19840101
  30. ZOLOFT [Concomitant]
     Dosage: 50 MG - 200 MG DAILY
     Route: 048
     Dates: start: 20020320
  31. METHOCARBAMOL [Concomitant]
  32. PRILOSEC [Concomitant]
     Route: 048
     Dates: start: 20060324
  33. LORTAB [Concomitant]
  34. LIPITOR [Concomitant]
     Route: 048
     Dates: start: 20060428
  35. PLAVIX [Concomitant]
     Route: 048
     Dates: start: 20060504
  36. ALBUTEROL [Concomitant]
     Dosage: INHALE 2 PUFFS EVERY 4 HOURS AS NEEDED
     Dates: start: 20020712
  37. LOVASTATIN [Concomitant]
     Route: 048
     Dates: start: 20050908
  38. ATROVENT [Concomitant]
     Dosage: 2 PUFFS FOUR TIMES A DAY
     Dates: start: 20050813
  39. FLEXERIL [Concomitant]
     Dosage: 30 MG - 4000 MG DAILY
     Dates: start: 20060324
  40. LODINE [Concomitant]
     Dates: start: 20060324
  41. VYTORIN [Concomitant]
     Dosage: 10 MG - 40 MG DAILY
     Route: 048
     Dates: start: 20061030
  42. ZYPREXA [Concomitant]
     Indication: BIPOLAR DISORDER
     Dosage: 10 MG - 15 MG DAILY
     Dates: start: 20030903

REACTIONS (7)
  - AFFECTIVE DISORDER [None]
  - DIABETES MELLITUS [None]
  - GLUCOSE TOLERANCE IMPAIRED [None]
  - HYPERGLYCAEMIA [None]
  - HYPOGLYCAEMIA [None]
  - IMPAIRED FASTING GLUCOSE [None]
  - SOCIAL AVOIDANT BEHAVIOUR [None]
